FAERS Safety Report 16192151 (Version 2)
Quarter: 2019Q2

REPORT INFORMATION
  Report Type: Report from Study
  Country: US (occurrence: US)
  Receive Date: 20190412
  Receipt Date: 20190417
  Transmission Date: 20190711
  Serious: No
  Sender: FDA-Public Use
  Company Number: PHEH2019US015723

PATIENT
  Age: 43 Year
  Sex: Male
  Weight: 140.6 kg

DRUGS (1)
  1. GLATOPA [Suspect]
     Active Substance: GLATIRAMER ACETATE
     Indication: MULTIPLE SCLEROSIS
     Dosage: 20 MG, QW
     Route: 058

REACTIONS (4)
  - Injection site erythema [Recovering/Resolving]
  - Chest pain [Recovering/Resolving]
  - Liver disorder [Recovering/Resolving]
  - Middle insomnia [Recovering/Resolving]

NARRATIVE: CASE EVENT DATE: 20190405
